FAERS Safety Report 20189105 (Version 1)
Quarter: 2021Q4

REPORT INFORMATION
  Report Type: Spontaneous
  Country: US (occurrence: None)
  Receive Date: 20211215
  Receipt Date: 20211215
  Transmission Date: 20220304
  Serious: Yes (Hospitalization)
  Sender: FDA-Public Use
  Company Number: None

PATIENT
  Sex: Female

DRUGS (18)
  1. CINACALCET [Suspect]
     Active Substance: CINACALCET
     Indication: End stage renal disease
     Dosage: FREQUENCY : AT BEDTIME;?
     Route: 048
     Dates: start: 20180801
  2. LIDO/PRILOCN [Concomitant]
  3. LEVEMIR [Concomitant]
     Active Substance: INSULIN DETEMIR
  4. TOPIRAMATE [Concomitant]
     Active Substance: TOPIRAMATE
  5. CLONIDINE [Concomitant]
     Active Substance: CLONIDINE
  6. ATORVASTATIN [Concomitant]
     Active Substance: ATORVASTATIN
  7. LEVETIRACETAM [Concomitant]
     Active Substance: LEVETIRACETAM
  8. HALOPERIDOL [Concomitant]
     Active Substance: HALOPERIDOL
  9. HYDRALAZINE [Concomitant]
     Active Substance: HYDRALAZINE HYDROCHLORIDE
  10. AMLODIPINE [Concomitant]
     Active Substance: AMLODIPINE BESYLATE
  11. ASPIRIN [Concomitant]
     Active Substance: ASPIRIN
  12. CLOPIDOGREL [Concomitant]
     Active Substance: CLOPIDOGREL BISULFATE
  13. OMEPRAZOLE [Concomitant]
     Active Substance: OMEPRAZOLE
  14. ALBUTEROL [Concomitant]
     Active Substance: ALBUTEROL
  15. PREGABALIN [Concomitant]
     Active Substance: PREGABALIN
  16. ACETAMINOPHEN\HYDROCODONE [Concomitant]
     Active Substance: ACETAMINOPHEN\HYDROCODONE
  17. BUDES/FORMOT [Concomitant]
  18. CARVEDILOL [Concomitant]
     Active Substance: CARVEDILOL

REACTIONS (5)
  - Nausea [None]
  - Alopecia [None]
  - Ankle fracture [None]
  - Vaccination complication [None]
  - Cardiac failure [None]
